FAERS Safety Report 8067165-4 (Version None)
Quarter: 2012Q1

REPORT INFORMATION
  Report Type: 
  Country: None (occurrence: None)
  Receive Date: 20120124
  Receipt Date: 20120120
  Transmission Date: 20120608
  Serious: Yes (Hospitalization)
  Sender: FDA-Public Use
  Company Number: US-GLAXOSMITHKLINE-A0893608A

PATIENT
  Age: 54 Year
  Sex: Male
  Weight: 93.6 kg

DRUGS (7)
  1. GLUCOPHAGE [Concomitant]
  2. AVANDIA [Suspect]
     Indication: TYPE 2 DIABETES MELLITUS
     Dosage: 4MG TWICE PER DAY
     Route: 048
     Dates: start: 20041218, end: 20090301
  3. GLYBURIDE [Concomitant]
  4. LISINOPRIL [Concomitant]
  5. TOPROL-XL [Concomitant]
  6. LIPITOR [Concomitant]
  7. NORVASC [Concomitant]

REACTIONS (9)
  - CARDIAC FAILURE [None]
  - MYOCARDIAL INFARCTION [None]
  - LIMB DISCOMFORT [None]
  - PAIN IN EXTREMITY [None]
  - ERECTILE DYSFUNCTION [None]
  - GAIT DISTURBANCE [None]
  - CORONARY ARTERY DISEASE [None]
  - ISCHAEMIC CARDIOMYOPATHY [None]
  - DYSPNOEA [None]
